FAERS Safety Report 9114024 (Version 1)
Quarter: 2013Q1

REPORT INFORMATION
  Report Type: Spontaneous
  Country: US (occurrence: US)
  Receive Date: 20130208
  Receipt Date: 20130208
  Transmission Date: 20140127
  Serious: No
  Sender: FDA-Public Use
  Company Number: US-TEVA-383850USA

PATIENT
  Sex: Female

DRUGS (1)
  1. ACTIQ [Suspect]
     Dates: start: 2004

REACTIONS (1)
  - Tooth loss [Unknown]
